FAERS Safety Report 7129503-6 (Version None)
Quarter: 2010Q4

REPORT INFORMATION
  Report Type: 
  Country: None (occurrence: None)
  Receive Date: 20101130
  Receipt Date: 20101124
  Transmission Date: 20110411
  Serious: Yes (Death, Hospitalization)
  Sender: FDA-Public Use
  Company Number: DE-CELGENEUS-062-21880-10100702

PATIENT
  Age: 71 Year
  Sex: Male
  Weight: 86 kg

DRUGS (7)
  1. REVLIMID [Suspect]
     Indication: MULTIPLE MYELOMA
     Route: 048
     Dates: start: 20091207
  2. REVLIMID [Suspect]
     Route: 048
     Dates: start: 20100816, end: 20100905
  3. REVLIMID [Suspect]
     Route: 048
     Dates: end: 20101006
  4. DEXAMETHASONE [Suspect]
     Indication: MULTIPLE MYELOMA
     Route: 048
     Dates: start: 20091207
  5. DEXAMETHASONE [Suspect]
     Route: 048
     Dates: start: 20100816, end: 20100905
  6. DEXAMETHASONE [Suspect]
     Route: 048
     Dates: end: 20101006
  7. ARIXTRA [Concomitant]
     Indication: PROPHYLAXIS
     Route: 065

REACTIONS (3)
  - MULTIPLE MYELOMA [None]
  - PANCYTOPENIA [None]
  - RENAL FAILURE [None]
